FAERS Safety Report 8465269-5 (Version None)
Quarter: 2012Q2

REPORT INFORMATION
  Report Type: 
  Country: None (occurrence: None)
  Receive Date: 20120626
  Receipt Date: 20120621
  Transmission Date: 20120825
  Serious: No
  Sender: FDA-Public Use
  Company Number: PHHY2012CO040288

PATIENT
  Sex: Female

DRUGS (4)
  1. CONTRACEPTIVE (NON-ORAL) [Concomitant]
  2. TASIGNA [Suspect]
     Indication: CHRONIC MYELOID LEUKAEMIA
     Dosage: 400 MG DAILY
     Route: 048
     Dates: start: 20101201
  3. TASIGNA [Suspect]
     Dosage: 400 MG DAILY
     Route: 048
  4. ORAL CONTRACEPTIVE NOS [Concomitant]

REACTIONS (3)
  - DELIVERY [None]
  - MATERNAL EXPOSURE DURING PREGNANCY [None]
  - NORMAL NEWBORN [None]
